FAERS Safety Report 10664910 (Version 1)
Quarter: 2014Q4

REPORT INFORMATION
  Report Type: Spontaneous
  Country: KR (occurrence: KR)
  Receive Date: 20141219
  Receipt Date: 20141219
  Transmission Date: 20150529
  Serious: Yes (Death, Hospitalization)
  Sender: FDA-Public Use
  Company Number: PHHY2014KR164069

PATIENT
  Age: 73 Year
  Sex: Female

DRUGS (2)
  1. HYDROCORTISONE. [Suspect]
     Active Substance: HYDROCORTISONE
     Indication: ADRENAL INSUFFICIENCY
     Dosage: 300 MG, QD
     Route: 065
  2. PREDNISOLONE. [Suspect]
     Active Substance: PREDNISOLONE
     Indication: ADRENAL INSUFFICIENCY
     Dosage: 5 MG, QD
     Route: 065

REACTIONS (22)
  - Haemoptysis [Unknown]
  - Anaemia [Unknown]
  - Pneumonia [Unknown]
  - Decreased appetite [Unknown]
  - Cough [Unknown]
  - Gastrointestinal oedema [Unknown]
  - Escherichia infection [Unknown]
  - Nausea [Unknown]
  - Vomiting [Unknown]
  - Asthenia [Unknown]
  - Altered state of consciousness [Unknown]
  - Lung infiltration [Unknown]
  - Pyrexia [Unknown]
  - Dehydration [Unknown]
  - Diarrhoea [Unknown]
  - Hypoalbuminaemia [Unknown]
  - Large intestinal ulcer [Unknown]
  - Gastrointestinal mucosal disorder [Unknown]
  - Meningitis bacterial [Fatal]
  - Respiratory failure [Unknown]
  - Strongyloidiasis [Unknown]
  - Enterococcal infection [Unknown]
